FAERS Safety Report 17414779 (Version 2)
Quarter: 2020Q1

REPORT INFORMATION
  Report Type: Spontaneous
  Country: HU (occurrence: HU)
  Receive Date: 20200213
  Receipt Date: 20200318
  Transmission Date: 20200409
  Serious: Yes (Death)
  Sender: FDA-Public Use
  Company Number: HU-JNJFOC-20200204555

PATIENT
  Sex: Male
  Weight: 51 kg

DRUGS (6)
  1. TRAMADOL. [Concomitant]
     Active Substance: TRAMADOL
     Indication: PAIN
     Route: 065
     Dates: start: 201907
  2. ZYTIGA [Suspect]
     Active Substance: ABIRATERONE ACETATE
     Indication: NEOPLASM PROSTATE
     Route: 048
     Dates: start: 20191007
  3. PREDNISOLONE. [Concomitant]
     Active Substance: PREDNISOLONE
     Route: 048
     Dates: start: 20191007
  4. POLITRATE [Concomitant]
     Indication: NEOPLASM PROSTATE
     Route: 065
     Dates: start: 201712
  5. VOLTAREN DOLO                      /00372303/ [Concomitant]
     Active Substance: DICLOFENAC DIETHYLAMINE
     Indication: PAIN
     Route: 065
     Dates: start: 20190901
  6. XGEVA [Concomitant]
     Active Substance: DENOSUMAB
     Indication: BONE DISORDER
     Route: 030
     Dates: start: 201909

REACTIONS (1)
  - Myocardial infarction [Fatal]
